FAERS Safety Report 12444646 (Version 2)
Quarter: 2016Q3

REPORT INFORMATION
  Report Type: Report from Study
  Country: DE (occurrence: DE)
  Receive Date: 20160607
  Receipt Date: 20160712
  Transmission Date: 20161109
  Serious: Yes (Other)
  Sender: FDA-Public Use
  Company Number: DE-GILEAD-2016-0203666

PATIENT
  Age: 59 Year
  Sex: Male
  Weight: 79.8 kg

DRUGS (4)
  1. LEDIPASVIR/SOFOSBUVIR [Suspect]
     Active Substance: LEDIPASVIR\SOFOSBUVIR
     Indication: CHRONIC HEPATITIS C
     Dosage: 1 DF, QD
     Route: 048
     Dates: start: 20150219, end: 20150805
  2. COPEGUS [Suspect]
     Active Substance: RIBAVIRIN
     Indication: CHRONIC HEPATITIS C
     Dosage: 1200 MG, QD
     Route: 048
     Dates: start: 20150219, end: 20150810
  3. METHADONE [Concomitant]
     Active Substance: METHADONE HYDROCHLORIDE
     Route: 065
  4. FENISTIL [Concomitant]
     Active Substance: DIMETHINDENE
     Route: 065

REACTIONS (4)
  - Oedema peripheral [Recovered/Resolved]
  - Respiratory distress [Recovered/Resolved]
  - Sense of oppression [Unknown]
  - Pruritus [Unknown]

NARRATIVE: CASE EVENT DATE: 20151008
